FAERS Safety Report 11417470 (Version 1)
Quarter: 2015Q3

REPORT INFORMATION
  Report Type: Spontaneous
  Country: US (occurrence: US)
  Receive Date: 20150825
  Receipt Date: 20150825
  Transmission Date: 20151125
  Serious: No
  Sender: FDA-Public Use
  Company Number: US-TARO-2015TAR00220

PATIENT
  Age: 76 Year
  Sex: Female
  Weight: 73.47 kg

DRUGS (4)
  1. LISINOPRIL/ HYDROCHLOROTHIAZIDE [Concomitant]
  2. CLOBETASOL PROPIONATE CREAM USP 0.05% [Suspect]
     Active Substance: CLOBETASOL PROPIONATE
     Indication: ECZEMA
     Dosage: 0.05 %, 5X/WEEK
     Route: 061
     Dates: start: 20150303, end: 20150310
  3. ABILIFY [Concomitant]
     Active Substance: ARIPIPRAZOLE
  4. SIMVASTATIN. [Concomitant]
     Active Substance: SIMVASTATIN

REACTIONS (3)
  - Application site pruritus [Not Recovered/Not Resolved]
  - Application site pain [Not Recovered/Not Resolved]
  - Application site inflammation [Not Recovered/Not Resolved]

NARRATIVE: CASE EVENT DATE: 20150303
